FAERS Safety Report 6795941-4 (Version None)
Quarter: 2010Q2

REPORT INFORMATION
  Report Type: 
  Country: None (occurrence: None)
  Receive Date: 20100625
  Receipt Date: 20100617
  Transmission Date: 20101027
  Serious: Yes (Hospitalization, Other)
  Sender: FDA-Public Use
  Company Number: B0661024A

PATIENT
  Sex: Male

DRUGS (2)
  1. TRIZIVIR [Suspect]
     Dates: end: 20100519
  2. ZELITREX [Concomitant]

REACTIONS (9)
  - CONJUNCTIVAL HAEMORRHAGE [None]
  - CONVULSION [None]
  - DRUG EXPOSURE DURING PREGNANCY [None]
  - FOETAL ARRHYTHMIA [None]
  - HYPOTONIA NEONATAL [None]
  - MENINGORRHAGIA [None]
  - RED BLOOD CELL COUNT DECREASED [None]
  - RESPIRATORY DISORDER [None]
  - STATUS EPILEPTICUS [None]
